FAERS Safety Report 7560374-X (Version None)
Quarter: 2011Q2

REPORT INFORMATION
  Report Type: 
  Country: None (occurrence: None)
  Receive Date: 20110621
  Receipt Date: 20110615
  Transmission Date: 20111010
  Serious: Yes (Other)
  Sender: FDA-Public Use
  Company Number: JP-ABBOTT-11P-087-0733163-00

PATIENT
  Sex: Female
  Weight: 64.4 kg

DRUGS (9)
  1. METHOTREXATE [Concomitant]
     Indication: RHEUMATOID ARTHRITIS
     Dates: start: 20091007
  2. PREDNISOLONE [Concomitant]
     Indication: RHEUMATOID ARTHRITIS
     Route: 048
     Dates: start: 20101102, end: 20110110
  3. SODIUM RISEDRONATE HYDRATE [Concomitant]
     Indication: PRODUCT USED FOR UNKNOWN INDICATION
     Route: 048
     Dates: start: 20101228
  4. PREDNISOLONE [Concomitant]
     Dates: start: 20110111, end: 20110207
  5. CELECOXIB [Concomitant]
     Indication: RHEUMATOID ARTHRITIS
     Dates: start: 20090915
  6. HUMIRA [Suspect]
     Indication: RHEUMATOID ARTHRITIS
     Dates: start: 20091007
  7. PREDNISOLONE [Concomitant]
     Dates: start: 20110419
  8. BUCILLAMINE [Concomitant]
     Indication: RHEUMATOID ARTHRITIS
     Dates: start: 20091007
  9. PREDNISOLONE [Concomitant]
     Dates: start: 20110208, end: 20110418

REACTIONS (4)
  - ARTHRALGIA [None]
  - EXOSTOSIS [None]
  - FRACTURE [None]
  - FALL [None]
